FAERS Safety Report 7597574-9 (Version None)
Quarter: 2011Q3

REPORT INFORMATION
  Report Type: 
  Country: None (occurrence: None)
  Receive Date: 20110708
  Receipt Date: 20110628
  Transmission Date: 20111222
  Serious: Yes (Hospitalization)
  Sender: FDA-Public Use
  Company Number: JP-ROCHE-778702

PATIENT
  Sex: Male
  Weight: 57 kg

DRUGS (3)
  1. PREDNISOLONE [Concomitant]
     Dosage: PERORAL AGENT
     Route: 048
     Dates: start: 20080501
  2. ACTEMRA [Suspect]
     Indication: RHEUMATOID ARTHRITIS
     Route: 041
     Dates: start: 20101201
  3. RHEUMATREX [Concomitant]
     Route: 048
     Dates: start: 20080501

REACTIONS (2)
  - HYPERLIPIDAEMIA [None]
  - GASTRIC CANCER [None]
